FAERS Safety Report 7210029-6 (Version None)
Quarter: 2011Q1

REPORT INFORMATION
  Report Type: 
  Country: None (occurrence: None)
  Receive Date: 20110105
  Receipt Date: 20101223
  Transmission Date: 20110831
  Serious: No
  Sender: FDA-Public Use
  Company Number: US-BIOGENIDEC-2011BI000098

PATIENT
  Age: 59 Year
  Sex: Female

DRUGS (5)
  1. AVONEX [Concomitant]
     Route: 030
  2. TYSABRI [Suspect]
     Indication: MULTIPLE SCLEROSIS
     Route: 042
     Dates: start: 20100630
  3. AVONEX [Concomitant]
     Route: 030
     Dates: start: 20000801
  4. AVONEX [Concomitant]
     Indication: MULTIPLE SCLEROSIS
     Route: 030
     Dates: start: 20100601
  5. AVONEX [Concomitant]
     Route: 030

REACTIONS (4)
  - HEADACHE [None]
  - DEPRESSION [None]
  - GAIT DISTURBANCE [None]
  - FATIGUE [None]
